FAERS Safety Report 4366388-5 (Version None)
Quarter: 2004Q2

REPORT INFORMATION
  Report Type: 
  Country: None (occurrence: None)
  Receive Date: 20040526
  Receipt Date: 20040526
  Transmission Date: 20050107
  Serious: Yes (Other)
  Sender: FDA-Public Use
  Company Number: None

PATIENT
  Sex: Female
  Weight: 56.6996 kg

DRUGS (2)
  1. ZANAFLEX [Suspect]
     Indication: INTERVERTEBRAL DISC PROTRUSION
     Dosage: 4 MG 2 QID
     Dates: start: 20020708
  2. ZANAFLEX [Suspect]
     Indication: PAIN
     Dosage: 4 MG 2 QID
     Dates: start: 20020708

REACTIONS (1)
  - PHARMACEUTICAL PRODUCT COMPLAINT [None]
